FAERS Safety Report 18887805 (Version 1)
Quarter: 2021Q1

REPORT INFORMATION
  Report Type: Spontaneous
  Country: US (occurrence: US)
  Receive Date: 20210212
  Receipt Date: 20210212
  Transmission Date: 20210420
  Serious: No
  Sender: FDA-Public Use
  Company Number: US-SA-2021SA039063

PATIENT
  Age: 62 Year
  Sex: Female
  Weight: 78 kg

DRUGS (17)
  1. DIPHENHYDRAMINE. [Concomitant]
     Active Substance: DIPHENHYDRAMINE
  2. HIZENTRA [Concomitant]
     Active Substance: HUMAN IMMUNOGLOBULIN G
  3. VITAMIN D2 [Concomitant]
     Active Substance: ERGOCALCIFEROL
  4. DUPIXENT [Suspect]
     Active Substance: DUPILUMAB
     Indication: IMMUNODEFICIENCY COMMON VARIABLE
     Dosage: UNK
     Route: 050
     Dates: start: 202007
  5. AMITRIPTYLINE [Concomitant]
     Active Substance: AMITRIPTYLINE
     Dosage: MAXZIDE25MG
  6. PRIMIDONE. [Concomitant]
     Active Substance: PRIMIDONE
     Dosage: 150MG
  7. LIDOCAINE. [Concomitant]
     Active Substance: LIDOCAINE
  8. MAXZIDE [Concomitant]
     Active Substance: HYDROCHLOROTHIAZIDE\TRIAMTERENE
     Dosage: MAXZIDE?25 MG 37.5?25 MG TABLET
  9. NEXIUM I.V. [Concomitant]
     Active Substance: ESOMEPRAZOLE SODIUM
     Dosage: 10MG
  10. SINGULAIR [Concomitant]
     Active Substance: MONTELUKAST SODIUM
     Dosage: 40MG
  11. ALISKIREN [Concomitant]
     Active Substance: ALISKIREN
     Dosage: 50MG
  12. ACETAMINOPHEN. [Concomitant]
     Active Substance: ACETAMINOPHEN
  13. CRESTOR [Concomitant]
     Active Substance: ROSUVASTATIN CALCIUM
     Dosage: 40MG
  14. EPINEPHRINE. [Concomitant]
     Active Substance: EPINEPHRINE
  15. VASCEPA [Concomitant]
     Active Substance: ICOSAPENT ETHYL
     Dosage: 50MG
  16. POTASSIUM CHLORIDE. [Concomitant]
     Active Substance: POTASSIUM CHLORIDE
  17. TOPAMAX [Concomitant]
     Active Substance: TOPIRAMATE
     Dosage: 150MG

REACTIONS (2)
  - Product use in unapproved indication [Unknown]
  - Back pain [Unknown]
